FAERS Safety Report 6643465-7 (Version None)
Quarter: 2010Q1

REPORT INFORMATION
  Report Type: 
  Country: None (occurrence: None)
  Receive Date: 20100319
  Receipt Date: 20100308
  Transmission Date: 20100710
  Serious: Yes (Hospitalization)
  Sender: FDA-Public Use
  Company Number: IT-WATSON-2010-03146

PATIENT
  Age: 32 Year
  Sex: Male

DRUGS (2)
  1. ZOLPIDEM TARTRATE [Suspect]
     Indication: DRUG USE FOR UNKNOWN INDICATION
     Dosage: 10 MG, PRN AND 40 MG X1
     Route: 048
  2. ZOLPIDEM TARTRATE [Suspect]
     Dosage: 10 MG, PRN

REACTIONS (4)
  - HALLUCINATION, AUDITORY [None]
  - INTENTIONAL SELF-INJURY [None]
  - OVERDOSE [None]
  - PSYCHOTIC DISORDER [None]
